FAERS Safety Report 6793459-6 (Version None)
Quarter: 2010Q2

REPORT INFORMATION
  Report Type: 
  Country: None (occurrence: None)
  Receive Date: 20100624
  Receipt Date: 20100319
  Transmission Date: 20101027
  Serious: No
  Sender: FDA-Public Use
  Company Number: US-MYLANLABS-2010S1004731

PATIENT
  Age: 21 Year
  Sex: Male

DRUGS (4)
  1. CLOZAPINE [Suspect]
     Indication: SCHIZOPHRENIA
     Route: 048
  2. TRAZODONE HYDROCHLORIDE [Concomitant]
     Route: 048
  3. EFFEXOR XR [Concomitant]
     Route: 048
  4. ETHOSUXIMIDE [Concomitant]
     Route: 048

REACTIONS (1)
  - GRANULOCYTES ABNORMAL [None]
